FAERS Safety Report 10510420 (Version 1)
Quarter: 2014Q4

REPORT INFORMATION
  Report Type: Spontaneous
  Country: US (occurrence: US)
  Receive Date: 20141010
  Receipt Date: 20141010
  Transmission Date: 20150528
  Serious: No
  Sender: FDA-Public Use
  Company Number: US-US-EMD SERONO, INC.-7325239

PATIENT
  Sex: Female

DRUGS (2)
  1. MENOPUR [Concomitant]
     Active Substance: FOLLICLE STIMULATING HORMONE BETA POLYPEPTIDE\LUTROPIN ALFA
     Indication: PRODUCT USED FOR UNKNOWN INDICATION
  2. GONAL-F [Suspect]
     Active Substance: FOLLITROPIN
     Indication: PRODUCT USED FOR UNKNOWN INDICATION
     Dates: start: 20140929

REACTIONS (2)
  - Anxiety [Not Recovered/Not Resolved]
  - Pruritus [Not Recovered/Not Resolved]
